FAERS Safety Report 18696074 (Version 2)
Quarter: 2021Q1

REPORT INFORMATION
  Report Type: Spontaneous
  Country: US (occurrence: US)
  Receive Date: 20210104
  Receipt Date: 20210212
  Transmission Date: 20210419
  Serious: Yes (Other)
  Sender: FDA-Public Use
  Company Number: US-BAYER-2021-001668

PATIENT
  Age: 40 Year
  Sex: Female
  Weight: 93.42 kg

DRUGS (2)
  1. SERTRALINE [Concomitant]
     Active Substance: SERTRALINE HYDROCHLORIDE
     Route: 048
  2. MIRENA [Suspect]
     Active Substance: LEVONORGESTREL
     Indication: CONTRACEPTION
     Dosage: 20 ?G PER DAY CONTINUOUSLY
     Route: 015
     Dates: start: 20200120, end: 20210106

REACTIONS (13)
  - Embedded device [None]
  - Menorrhagia [None]
  - Haematochezia [None]
  - Abdominal pain lower [None]
  - Mammogram abnormal [None]
  - Weight increased [None]
  - Uterine leiomyoma [None]
  - Device expulsion [Recovered/Resolved]
  - Genital haemorrhage [None]
  - Haemorrhoids [None]
  - Constipation [None]
  - Anal skin tags [None]
  - Ovarian cyst [None]

NARRATIVE: CASE EVENT DATE: 2020
